FAERS Safety Report 5862114-9 (Version None)
Quarter: 2008Q3

REPORT INFORMATION
  Report Type: 
  Country: None (occurrence: None)
  Receive Date: 20080818
  Receipt Date: 20080625
  Transmission Date: 20090109
  Serious: No
  Sender: FDA-Public Use
  Company Number: WAES 0806USA08796

PATIENT
  Sex: Female

DRUGS (1)
  1. JANUVIA [Suspect]
     Indication: TYPE 2 DIABETES MELLITUS
     Dosage: PO
     Route: 048

REACTIONS (5)
  - CONSTIPATION [None]
  - DYSPNOEA [None]
  - INFLUENZA LIKE ILLNESS [None]
  - PRURITUS [None]
  - RESPIRATORY DISORDER [None]
